FAERS Safety Report 10997186 (Version 1)
Quarter: 2015Q1

REPORT INFORMATION
  Report Type: Spontaneous
  Country: US (occurrence: None)
  Receive Date: 20150331
  Receipt Date: 20150331
  Transmission Date: 20150721
  Serious: Yes (Disabling)
  Sender: FDA-Public Use
  Company Number: PHEH2014US013192

PATIENT
  Age: 61 Year
  Sex: Male

DRUGS (12)
  1. AMLODIPINE [Concomitant]
     Active Substance: AMLODIPINE BESYLATE
  2. LOMOTIL//LOPERAMIDE HYDROCHLORIDE (LOPERAMIDE HYDROCHLORIDE) [Concomitant]
  3. VITAMIN D (ERGOCALCIFEROL) [Concomitant]
     Active Substance: ERGOCALCIFEROL
  4. OMEGA 3 (FISH OIL) [Concomitant]
     Active Substance: OMEGA-3 FATTY ACIDS
  5. CLIPOXIDE (CHLORIDAZEPOXIDE HYDROCHLORIDE) CAPSULE [Concomitant]
  6. MULTIVIT/VITAMINS NOS (VITAMINS NOS) [Concomitant]
  7. LISINOPRIL (LINOPRIL) [Concomitant]
  8. TIZANIDINE (TIZANIDINE) [Concomitant]
     Active Substance: TIZANIDINE
  9. RIVASTIGMINE [Suspect]
     Active Substance: RIVASTIGMINE
     Indication: AMNESIA
     Dosage: 1.5 MG, BID, ORAL
     Route: 048
     Dates: start: 20140603, end: 20140618
  10. FEXOFENADINE HYDROCHLORIDE (FEXOFENADINE HYDROCHLORIDE) [Concomitant]
     Active Substance: FEXOFENADINE HYDROCHLORIDE
  11. DIPHENOXYLATE/ATROPINE (ATROPINE SULFATE, DIPHENOXYLATE HYDROCHLORIDE) [Concomitant]
  12. AMPHETAMINE ER (AMFETAMINE) [Concomitant]

REACTIONS (1)
  - Diarrhoea [None]

NARRATIVE: CASE EVENT DATE: 20140619
